FAERS Safety Report 25189168 (Version 1)
Quarter: 2025Q2

REPORT INFORMATION
  Report Type: Spontaneous
  Country: US (occurrence: US)
  Receive Date: 20250411
  Receipt Date: 20250411
  Transmission Date: 20250716
  Serious: Yes (Hospitalization, Other)
  Sender: STRIDES
  Company Number: US-STRIDES ARCOLAB LIMITED-2025SP004595

PATIENT
  Age: 61 Year
  Sex: Male

DRUGS (2)
  1. PHENOBARBITAL [Suspect]
     Active Substance: PHENOBARBITAL
     Indication: Alcohol withdrawal syndrome
     Route: 065
  2. PHENOBARBITAL [Suspect]
     Active Substance: PHENOBARBITAL
     Route: 065

REACTIONS (7)
  - Encephalopathy [Recovering/Resolving]
  - Respiratory failure [Recovering/Resolving]
  - Condition aggravated [Recovering/Resolving]
  - Metabolic acidosis [Recovering/Resolving]
  - Hyperammonaemia [Recovering/Resolving]
  - Toxicity to various agents [Recovering/Resolving]
  - Off label use [Unknown]
